FAERS Safety Report 23711305 (Version 2)
Quarter: 2024Q2

REPORT INFORMATION
  Report Type: Report from Study
  Country: US (occurrence: US)
  Receive Date: 20240405
  Receipt Date: 20240521
  Transmission Date: 20240717
  Serious: No
  Sender: FDA-Public Use
  Company Number: US-SANDOZ-SDZ2024US035336

PATIENT
  Sex: Female

DRUGS (2)
  1. OMNITROPE [Suspect]
     Active Substance: SOMATROPIN
     Indication: Hypopituitarism
     Dosage: 1 MG 2 DOSE EVERY N/A N/A
     Route: 058
     Dates: start: 20240329
  2. OMNITROPE [Suspect]
     Active Substance: SOMATROPIN
     Indication: Hypopituitarism
     Dosage: 1 MG 2 DOSE EVERY N/A N/A
     Route: 058
     Dates: start: 20240329

REACTIONS (3)
  - Injection site discharge [Unknown]
  - Wrong technique in product usage process [Unknown]
  - Product storage error [Unknown]
